FAERS Safety Report 14144854 (Version 1)
Quarter: 2017Q4

REPORT INFORMATION
  Report Type: Spontaneous
  Country: FR (occurrence: FR)
  Receive Date: 20171031
  Receipt Date: 20171031
  Transmission Date: 20180321
  Serious: Yes (Hospitalization)
  Sender: FDA-Public Use
  Company Number: FR-LPDUSPRD-20171473

PATIENT
  Age: 30 Year
  Sex: Female

DRUGS (1)
  1. FERINJECT [Suspect]
     Active Substance: FERRIC CARBOXYMALTOSE
     Dosage: 1GM
     Route: 041
     Dates: start: 20170830, end: 20170830

REACTIONS (3)
  - Malaise [Recovered/Resolved]
  - Exposure during pregnancy [Unknown]
  - Chest pain [Unknown]

NARRATIVE: CASE EVENT DATE: 20170830
